FAERS Safety Report 24197374 (Version 1)
Quarter: 2024Q3

REPORT INFORMATION
  Report Type: Spontaneous
  Country: ES (occurrence: ES)
  Receive Date: 20240810
  Receipt Date: 20240810
  Transmission Date: 20241017
  Serious: Yes (Hospitalization)
  Sender: TEVA
  Company Number: None

PATIENT
  Age: 75 Year
  Sex: Male

DRUGS (5)
  1. OLANZAPINE [Interacting]
     Active Substance: OLANZAPINE
     Indication: Depression
     Dosage: 15 MG FROM 01/27/2024
     Route: 048
     Dates: start: 20240127, end: 20240304
  2. OLANZAPINE [Interacting]
     Active Substance: OLANZAPINE
     Indication: Depression
     Dosage: 2.5 MG FROM 07/25/2023; OLANZAPINA (2770A)
     Route: 048
     Dates: start: 20230725, end: 20240126
  3. OLANZAPINE [Interacting]
     Active Substance: OLANZAPINE
     Indication: Depression
     Dosage: 0-0-1
     Route: 048
     Dates: start: 20240305, end: 20240422
  4. TRAZODONE HYDROCHLORIDE [Interacting]
     Active Substance: TRAZODONE HYDROCHLORIDE
     Indication: Depression
     Dosage: 0-0-2 ;  EFG  30 TABLETS
     Route: 048
     Dates: start: 20231106, end: 20240422
  5. ANAFRANIL [Interacting]
     Active Substance: CLOMIPRAMINE HYDROCHLORIDE
     Indication: Depression
     Dosage: 1-0-1;  28 TABLETS, EXTENDED RELEASE TABLETS
     Route: 048
     Dates: start: 20230720, end: 20240422

REACTIONS (1)
  - Hyponatraemia [Recovered/Resolved]

NARRATIVE: CASE EVENT DATE: 20240420
